FAERS Safety Report 4525838-1 (Version None)
Quarter: 2004Q4

REPORT INFORMATION
  Report Type: 
  Country: None (occurrence: None)
  Receive Date: 20041124
  Receipt Date: 20031002
  Transmission Date: 20050328
  Serious: Yes (Other)
  Sender: FDA-Public Use
  Company Number: 2003109976

PATIENT
  Sex: Female

DRUGS (10)
  1. TIKOSYN [Suspect]
     Indication: ATRIAL FIBRILLATION
     Dosage: 500 MCG (BID), ORAL
     Route: 048
     Dates: start: 20020401
  2. WARFARIN SODIUM [Concomitant]
  3. METOPROLOL TARTRATE [Concomitant]
  4. LEVOTHYROXINE SODIUM [Concomitant]
  5. FUROSEMIDE [Concomitant]
  6. HYDROCODONE (HYDROCODONE) [Concomitant]
  7. LISINOPRIL [Concomitant]
  8. POTASSIUM (POTASSIUM) [Concomitant]
  9. ALENDRONATE SODIUM [Concomitant]
  10. ISOSORBIDE MONONITRATE [Concomitant]

REACTIONS (2)
  - ATRIAL FIBRILLATION [None]
  - HEART RATE DECREASED [None]
